FAERS Safety Report 7387383-8 (Version None)
Quarter: 2011Q1

REPORT INFORMATION
  Report Type: 
  Country: None (occurrence: None)
  Receive Date: 20110331
  Receipt Date: 20110318
  Transmission Date: 20110831
  Serious: Yes (Other)
  Sender: FDA-Public Use
  Company Number: PHHY2011US22976

PATIENT
  Sex: Female

DRUGS (10)
  1. DILTIAZEM [Concomitant]
     Dosage: 120 MG, UNK
  2. CINNAMON [Concomitant]
  3. FISH OIL [Concomitant]
  4. ASPIRIN [Concomitant]
  5. FEMARA [Suspect]
     Indication: BREAST CANCER
     Dosage: 2.5 MG, QD
  6. FLAX SEED OIL [Concomitant]
  7. VITAMIN B COMPLEX CAP [Concomitant]
  8. OSTEO BI-FLEX [Concomitant]
  9. ARIMIDEX [Suspect]
     Indication: BREAST CANCER
     Dosage: 1 MG, UNK
  10. PRILOSEC [Concomitant]
     Dosage: , 1 X DAYUNK

REACTIONS (7)
  - NEOPLASM MALIGNANT [None]
  - BONE PAIN [None]
  - ARRHYTHMIA [None]
  - BREAST INFECTION [None]
  - LUNG DISORDER [None]
  - BREAST SWELLING [None]
  - FATIGUE [None]
